FAERS Safety Report 21633968 (Version 3)
Quarter: 2023Q1

REPORT INFORMATION
  Report Type: Spontaneous
  Country: CN (occurrence: CN)
  Receive Date: 20221123
  Receipt Date: 20230220
  Transmission Date: 20230418
  Serious: Yes (Hospitalization, Other)
  Sender: FDA-Public Use
  Company Number: CN-Accord-287388

PATIENT
  Age: 53 Year
  Sex: Female

DRUGS (2)
  1. HYDROXYCHLOROQUINE [Suspect]
     Active Substance: HYDROXYCHLOROQUINE
     Indication: Rheumatoid arthritis
     Dosage: 0.2 G TWICE/DAY, TABLET
     Route: 048
     Dates: start: 202111, end: 202111
  2. ETORICOXIB [Suspect]
     Active Substance: ETORICOXIB
     Indication: Rheumatoid arthritis
     Dosage: 60 MG ONCE/ DAY
     Route: 048
     Dates: start: 202111, end: 202111

REACTIONS (2)
  - Sinus bradycardia [Recovered/Resolved]
  - Cardiac failure [Recovered/Resolved]

NARRATIVE: CASE EVENT DATE: 20211130
